FAERS Safety Report 5196951-3 (Version None)
Quarter: 2006Q4

REPORT INFORMATION
  Report Type: 
  Country: None (occurrence: None)
  Receive Date: 20061227
  Receipt Date: 20061214
  Transmission Date: 20070319
  Serious: Yes (Hospitalization)
  Sender: FDA-Public Use
  Company Number: 2006150269

PATIENT
  Age: 83 Year
  Sex: Female
  Weight: 55 kg

DRUGS (5)
  1. ALDACTONE [Suspect]
     Dosage: 25 MG (25 MG, 1 IN 1 D), ORAL
     Route: 048
  2. ENALAPRIL MALEATE [Suspect]
     Dosage: 30 MG (30 MG, 1 IN 1 D), ORAL
     Route: 048
  3. POTASSIUM CHLORIDE [Suspect]
     Dosage: 2 DOSE FORM (DAILY), ORAL
     Route: 048
  4. LASIX [Suspect]
     Dosage: 80 MG (40 MG, DAILY), ORAL
     Route: 048
  5. LEVOTHYROXINE SODIUM [Concomitant]

REACTIONS (15)
  - ARRHYTHMIA [None]
  - ASTHENIA [None]
  - ATRIAL FIBRILLATION [None]
  - BLOOD FOLATE DECREASED [None]
  - DEHYDRATION [None]
  - DIARRHOEA [None]
  - DRUG INTERACTION [None]
  - FALL [None]
  - GASTROENTERITIS [None]
  - HYPERKALAEMIA [None]
  - HYPOVITAMINOSIS [None]
  - IRON DEFICIENCY [None]
  - MYALGIA [None]
  - RENAL FAILURE ACUTE [None]
  - VOMITING [None]
